FAERS Safety Report 9962738 (Version 2)
Quarter: 2014Q1

REPORT INFORMATION
  Report Type: Report from Study
  Country: US (occurrence: US)
  Receive Date: 20140305
  Receipt Date: 20140305
  Transmission Date: 20141002
  Serious: Yes (Other)
  Sender: FDA-Public Use
  Company Number: US-ABBVIE-13P-163-1071112-00

PATIENT
  Age: 51 Year
  Sex: Female

DRUGS (13)
  1. HUMIRA [Suspect]
     Indication: RHEUMATOID ARTHRITIS
     Dates: start: 20121217
  2. STEROID [Suspect]
     Indication: PRODUCT USED FOR UNKNOWN INDICATION
  3. PROTONIX [Concomitant]
     Indication: HYPERCHLORHYDRIA
  4. PLAQUENIL [Concomitant]
     Indication: CROHN^S DISEASE
     Dosage: 200 MG EVERY DAY
  5. PENTASA [Concomitant]
     Indication: CROHN^S DISEASE
  6. PREDNISONE [Concomitant]
     Indication: CROHN^S DISEASE
     Dosage: 17.5 MG EVERY DAY
  7. SYNTHROID [Concomitant]
     Indication: HYPOTHYROIDISM
     Dosage: 0.75 MCG DAILY
  8. B-12 [Concomitant]
     Indication: VITAMIN SUPPLEMENTATION
  9. ULTRAM [Concomitant]
     Indication: PAIN
  10. IRON [Concomitant]
     Indication: PRODUCT USED FOR UNKNOWN INDICATION
     Dosage: INFUSIONS
  11. PRED FORTE [Concomitant]
     Indication: EYE INFLAMMATION
     Dosage: DROPS
  12. RESTASIS [Concomitant]
     Indication: PRODUCT USED FOR UNKNOWN INDICATION
     Dosage: 1 DROP IN EACH EYE BID AS REQUIRED
  13. CARDIZEM [Concomitant]
     Indication: RAYNAUD^S PHENOMENON

REACTIONS (3)
  - Abdominal pain [Recovering/Resolving]
  - Herpes zoster [Unknown]
  - Post herpetic neuralgia [Unknown]
